FAERS Safety Report 6492832-3 (Version None)
Quarter: 2009Q4

REPORT INFORMATION
  Report Type: 
  Country: None (occurrence: None)
  Receive Date: 20091214
  Receipt Date: 20091203
  Transmission Date: 20100525
  Serious: Yes (Other)
  Sender: FDA-Public Use
  Company Number: US-BAXTER-2009BH018663

PATIENT
  Age: 64 Year
  Sex: Female

DRUGS (5)
  1. GAMMAGARD S/D [Suspect]
     Indication: IMMUNODEFICIENCY
     Route: 042
     Dates: end: 20091022
  2. ALLEGRA [Concomitant]
  3. CLARIDON [Concomitant]
  4. MOTRIN [Concomitant]
  5. PREDNISONE [Concomitant]
     Dates: start: 20090701

REACTIONS (2)
  - CYTOKINE STORM [None]
  - FATIGUE [None]
